FAERS Safety Report 16283474 (Version 1)
Quarter: 2019Q2

REPORT INFORMATION
  Report Type: Spontaneous
  Country: US (occurrence: US)
  Receive Date: 20190507
  Receipt Date: 20190507
  Transmission Date: 20190711
  Serious: Yes (Other)
  Sender: FDA-Public Use
  Company Number: US-SA-2019SA117990

PATIENT
  Age: 53 Year
  Sex: Female
  Weight: 56.7 kg

DRUGS (15)
  1. ATENOLOL. [Concomitant]
     Active Substance: ATENOLOL
  2. ADVAIR HFA [Concomitant]
     Active Substance: FLUTICASONE PROPIONATE\SALMETEROL XINAFOATE
  3. ALBUTEROL SULFATE. [Concomitant]
     Active Substance: ALBUTEROL SULFATE
  4. GABAPENTIN. [Concomitant]
     Active Substance: GABAPENTIN
  5. SPIRIVA [Concomitant]
     Active Substance: TIOTROPIUM BROMIDE MONOHYDRATE
  6. VENTOLIN [Concomitant]
     Active Substance: ALBUTEROL SULFATE
  7. NEOSAR [Concomitant]
     Active Substance: CYCLOPHOSPHAMIDE
  8. BUSPIRONE HCL [Concomitant]
     Active Substance: BUSPIRONE HYDROCHLORIDE
  9. LEVOTHYROXINE. [Concomitant]
     Active Substance: LEVOTHYROXINE
  10. ADRIAMYCIN [Concomitant]
     Active Substance: DOXORUBICIN HYDROCHLORIDE
  11. XANAX [Concomitant]
     Active Substance: ALPRAZOLAM
  12. TAXOTERE [Suspect]
     Active Substance: DOCETAXEL
     Indication: BREAST CANCER FEMALE
     Dosage: UNK UNK, Q3W
     Route: 042
     Dates: start: 200411, end: 200411
  13. CLONAZEPAM. [Concomitant]
     Active Substance: CLONAZEPAM
  14. VITAMIN B12 [Concomitant]
     Active Substance: CYANOCOBALAMIN
  15. TAXOTERE [Suspect]
     Active Substance: DOCETAXEL
     Dosage: UNK UNK, Q3W
     Route: 042
     Dates: start: 200501, end: 200501

REACTIONS (2)
  - Alopecia [Not Recovered/Not Resolved]
  - Psychological trauma [Unknown]

NARRATIVE: CASE EVENT DATE: 200412
